FAERS Safety Report 9012677 (Version 1)
Quarter: 2013Q1

REPORT INFORMATION
  Report Type: Report from Study
  Country: GB (occurrence: GB)
  Receive Date: 20130114
  Receipt Date: 20130114
  Transmission Date: 20140127
  Serious: Yes (Death)
  Sender: FDA-Public Use
  Company Number: GB-ABBOTT-13P-167-1035388-00

PATIENT
  Sex: Female

DRUGS (2)
  1. HUMIRA [Suspect]
     Indication: RHEUMATOID ARTHRITIS
     Route: 058
     Dates: start: 20090501, end: 20090919
  2. METHOTREXATE [Concomitant]
     Indication: RHEUMATOID ARTHRITIS
     Dates: start: 200403

REACTIONS (5)
  - Intestinal obstruction [Fatal]
  - Abdominal adhesions [Fatal]
  - Diverticulum [Fatal]
  - Myocardial ischaemia [Fatal]
  - Neoplasm malignant [Fatal]
